FAERS Safety Report 9134614 (Version 1)
Quarter: 2013Q1

REPORT INFORMATION
  Report Type: Spontaneous
  Country: FR (occurrence: FR)
  Receive Date: 20130304
  Receipt Date: 20130304
  Transmission Date: 20140127
  Serious: Yes (Hospitalization, Other)
  Sender: FDA-Public Use
  Company Number: FR-009507513-1108FRA00078

PATIENT
  Sex: Female
  Weight: 88 kg

DRUGS (2)
  1. MK-0966 [Suspect]
     Indication: ARTHRALGIA
     Dosage: 1 DF, QD
     Route: 048
     Dates: start: 200211, end: 20041101
  2. ISOMERIDE [Suspect]
     Dosage: 2 DF, QD
     Route: 048
     Dates: start: 200211, end: 20041101

REACTIONS (10)
  - Atrial fibrillation [Unknown]
  - Bradycardia [Unknown]
  - Cardiac failure [Unknown]
  - Pancreatitis necrotising [Unknown]
  - Basal cell carcinoma [Unknown]
  - Dyspnoea [Unknown]
  - Asthenia [Unknown]
  - Interstitial lung disease [Unknown]
  - Pulmonary arterial hypertension [Unknown]
  - Off label use [Unknown]
